FAERS Safety Report 18262998 (Version 1)
Quarter: 2020Q3

REPORT INFORMATION
  Report Type: Spontaneous
  Country: US (occurrence: US)
  Receive Date: 20200914
  Receipt Date: 20200914
  Transmission Date: 20201103
  Serious: Yes (Death)
  Sender: FDA-Public Use
  Company Number: None

PATIENT
  Age: 87 Year
  Sex: Female
  Weight: 60.78 kg

DRUGS (14)
  1. METAMUCIL [Concomitant]
     Active Substance: PLANTAGO SEED
  2. MULTIVITAMIN GUMMIES ADULT [Concomitant]
  3. OMEGA 3 [Concomitant]
     Active Substance: OMEGA-3 FATTY ACIDS
  4. IBRANCE [Suspect]
     Active Substance: PALBOCICLIB
     Indication: BREAST CANCER
     Route: 048
     Dates: start: 20200701, end: 20200914
  5. LEVOTHYROXINE SODIUM. [Concomitant]
     Active Substance: LEVOTHYROXINE SODIUM
  6. ONDANSETRON HCL [Concomitant]
     Active Substance: ONDANSETRON HYDROCHLORIDE
  7. FLUCONAZOLE. [Concomitant]
     Active Substance: FLUCONAZOLE
  8. GABAPENTIN. [Concomitant]
     Active Substance: GABAPENTIN
  9. VITAMIN C [Concomitant]
     Active Substance: ASCORBIC ACID
  10. MELATONIN [Concomitant]
     Active Substance: MELATONIN
  11. PEPCID [Concomitant]
     Active Substance: FAMOTIDINE
  12. RETACRIT [Concomitant]
     Active Substance: EPOETIN ALFA-EPBX
  13. ANASTROZOLE. [Concomitant]
     Active Substance: ANASTROZOLE
  14. PROBIOTIC DAILY [Concomitant]

REACTIONS (1)
  - Death [None]

NARRATIVE: CASE EVENT DATE: 20200914
